FAERS Safety Report 18554743 (Version 2)
Quarter: 2020Q4

REPORT INFORMATION
  Report Type: Report from Study
  Country: US (occurrence: US)
  Receive Date: 20201127
  Receipt Date: 20201224
  Transmission Date: 20210114
  Serious: Yes (Hospitalization)
  Sender: FDA-Public Use
  Company Number: US-UCBSA-2020046987

PATIENT
  Age: 70 Year
  Sex: Male
  Weight: 78.47 kg

DRUGS (5)
  1. LACOSAMIDE. [Suspect]
     Active Substance: LACOSAMIDE
     Indication: SEIZURE
     Dosage: 150 MILLIGRAM, 2X/DAY (BID)
     Dates: start: 202010
  2. KEPPRA [Suspect]
     Active Substance: LEVETIRACETAM
     Indication: SEIZURE
     Dosage: 2000MG DAILY
     Dates: start: 2011
  3. KEPPRA [Suspect]
     Active Substance: LEVETIRACETAM
     Dosage: 2250 MILLIGRAM, 2X/DAY (BID)
     Dates: start: 2011
  4. DILANTIN [Concomitant]
     Active Substance: PHENYTOIN
     Indication: SEIZURE
     Dosage: 200 MILLIGRAM, 2X/DAY (BID)
     Dates: start: 1987
  5. LACOSAMIDE. [Suspect]
     Active Substance: LACOSAMIDE
     Indication: EPILEPSY
     Dosage: 100 MILLIGRAM, 2X/DAY (BID)
     Dates: start: 202003

REACTIONS (5)
  - Confusional state [Unknown]
  - Pneumonia [Not Recovered/Not Resolved]
  - Seizure [Recovering/Resolving]
  - Prescribed overdose [Unknown]
  - Weight decreased [Recovering/Resolving]

NARRATIVE: CASE EVENT DATE: 20201029
